FAERS Safety Report 8792929 (Version 1)
Quarter: 2012Q4

REPORT INFORMATION
  Report Type: 
  Country: FR (occurrence: FR)
  Receive Date: 20120918
  Receipt Date: 20120918
  Transmission Date: 20130627
  Serious: Yes (Other)
  Sender: FDA-Public Use
  Company Number: FR-ACTELION-A-CH2012-71521

PATIENT
  Age: 78 Year
  Sex: Female

DRUGS (9)
  1. TRACLEER [Suspect]
     Indication: PULMONARY ARTERIAL HYPERTENSION
     Route: 048
  2. VENTAVIS [Suspect]
     Indication: PULMONARY ARTERIAL HYPERTENSION
     Dosage: UNK
     Route: 055
     Dates: start: 201109
  3. REVATIO [Concomitant]
  4. LASILIX [Concomitant]
  5. PREVISCAN [Concomitant]
  6. HAMAMELIS [Concomitant]
  7. LEVOTHYROX [Concomitant]
  8. METFORMIN [Concomitant]
  9. DUODERM [Concomitant]

REACTIONS (2)
  - Eosinophilia [Not Recovered/Not Resolved]
  - Wound [Unknown]
